FAERS Safety Report 7383834-3 (Version None)
Quarter: 2011Q1

REPORT INFORMATION
  Report Type: 
  Country: None (occurrence: None)
  Receive Date: 20110323
  Receipt Date: 20110317
  Transmission Date: 20110831
  Serious: Yes (Hospitalization)
  Sender: FDA-Public Use
  Company Number: WAES 1103FRA00090

PATIENT
  Age: 31 Year
  Sex: Male

DRUGS (7)
  1. ISONIAZID [Suspect]
     Indication: TUBERCULOSIS
     Dosage: 300 MG/DAILY; PO
     Route: 048
     Dates: start: 20110201
  2. TENOFOVIR DISOPROXIL FUMARATE (VIREAD) [Suspect]
     Indication: HIV INFECTION
     Dosage: 300 MG/DAILY; PO
     Route: 048
     Dates: start: 20110214
  3. ETHAMBUTOL HYDROCHLORIDE [Suspect]
     Indication: TUBERCULOSIS
     Dosage: 1100 MG/DAILY; PO
     Route: 048
     Dates: start: 20110201
  4. RIFAMPIN [Suspect]
     Indication: TUBERCULOSIS
     Dosage: 600 MG/ DAILY, PO
     Route: 048
     Dates: start: 20110201
  5. TAB RALTEGRAVIR POTASSIUM [Suspect]
     Indication: HIV INFECTION
     Dosage: 400 MG/BID; PO
     Route: 048
     Dates: start: 20110214
  6. PYRAZINAMIDE [Suspect]
     Indication: TUBERCULOSIS
     Dosage: 600 MG/DAILY; PO
     Route: 048
     Dates: start: 20110201
  7. LAMIVUDINE [Suspect]
     Indication: HIV INFECTION
     Dosage: 300 MG/DAILY; PO
     Route: 048
     Dates: start: 20110214

REACTIONS (1)
  - DEEP VEIN THROMBOSIS [None]
